FAERS Safety Report 16992084 (Version 1)
Quarter: 2019Q4

REPORT INFORMATION
  Report Type: Spontaneous
  Country: GB (occurrence: GB)
  Receive Date: 20191105
  Receipt Date: 20191105
  Transmission Date: 20200122
  Serious: Yes (Other)
  Sender: FDA-Public Use
  Company Number: GB-ROCHE-2461826

PATIENT
  Age: 75 Year
  Sex: Female

DRUGS (4)
  1. PREDNISOLONE. [Concomitant]
     Active Substance: PREDNISOLONE
  2. CYCLOPHOSPHAMIDE. [Concomitant]
     Active Substance: CYCLOPHOSPHAMIDE
  3. GAZYVARO [Suspect]
     Active Substance: OBINUTUZUMAB
     Indication: PRODUCT USED FOR UNKNOWN INDICATION
     Dosage: 6 CYCLES OF GAZYVARO.
     Route: 042
  4. VINCRISTINE [Concomitant]
     Active Substance: VINCRISTINE

REACTIONS (4)
  - Actinic keratosis [Unknown]
  - Diverticulitis [Unknown]
  - Herpes zoster [Unknown]
  - Perioral dermatitis [Unknown]
